FAERS Safety Report 10221479 (Version 1)
Quarter: 2014Q2

REPORT INFORMATION
  Report Type: Spontaneous
  Country: US (occurrence: US)
  Receive Date: 20140606
  Receipt Date: 20140606
  Transmission Date: 20141212
  Serious: Yes (Other)
  Sender: FDA-Public Use
  Company Number: US-WATSON-2014-11811

PATIENT
  Age: 36 Year
  Sex: Female
  Weight: 59 kg

DRUGS (5)
  1. BUPROPION HYDROCHLORIDE (WATSON LABORATORIES) [Suspect]
     Indication: DEPRESSION
     Dosage: 300 MG, DAILY
     Route: 048
     Dates: start: 201403, end: 201404
  2. ADVAIR [Concomitant]
     Indication: ASTHMA
     Dosage: UNK, PRN
     Route: 055
  3. ALBUTEROL                          /00139501/ [Concomitant]
     Indication: ASTHMA
     Dosage: UNK, PRN
     Route: 055
  4. FIORICET [Concomitant]
     Indication: MIGRAINE
     Dosage: UNK
     Route: 048
     Dates: start: 2009
  5. MACROBID                           /00024401/ [Concomitant]
     Indication: URINARY TRACT INFECTION
     Dosage: UNK, PRN
     Route: 048

REACTIONS (12)
  - Suicidal ideation [Recovered/Resolved]
  - Drug ineffective [Recovered/Resolved]
  - Irritability [Recovered/Resolved]
  - Decreased interest [Unknown]
  - Crying [Unknown]
  - Feelings of worthlessness [Unknown]
  - Personality change [Recovered/Resolved]
  - Feeling abnormal [Unknown]
  - Asthenia [Unknown]
  - Depression [Recovered/Resolved]
  - Mental disorder [Unknown]
  - Family stress [Unknown]
